FAERS Safety Report 10395368 (Version 1)
Quarter: 2014Q1

REPORT INFORMATION
  Report Type: Spontaneous
  Country: US (occurrence: None)
  Receive Date: 20130103
  Receipt Date: 20130103
  Transmission Date: 20141002
  Serious: Yes (Congenital Anomaly)
  Sender: FDA-Public Use
  Company Number: DSA_47276_2011

PATIENT
  Age: 39 Year
  Sex: Female
  Weight: 36.29 kg

DRUGS (3)
  1. XENAZINE 12.5 MG (NOT SPECIFIED) [Suspect]
     Indication: HUNTINGTON^S DISEASE
     Route: 048
     Dates: start: 20110706
  2. TRIVORA [Concomitant]
  3. LANSOPRAZOLE [Concomitant]

REACTIONS (2)
  - Headache [None]
  - Somnolence [None]
